FAERS Safety Report 9770156 (Version 1)
Quarter: 2013Q4

REPORT INFORMATION
  Report Type: Spontaneous
  Country: BR (occurrence: BR)
  Receive Date: 20131218
  Receipt Date: 20131218
  Transmission Date: 20140711
  Serious: Yes (Hospitalization, Other)
  Sender: FDA-Public Use
  Company Number: BR-ELI_LILLY_AND_COMPANY-BR201312003083

PATIENT
  Age: 24 Year
  Sex: Male

DRUGS (12)
  1. HUMULIN N [Suspect]
     Indication: DIABETES MELLITUS
     Dosage: 30 IU, EACH MORNING
     Route: 058
     Dates: end: 2008
  2. HUMULIN N [Suspect]
     Dosage: 30 IU, QD
     Route: 058
  3. HUMULIN N [Suspect]
     Dosage: 20 IU, EACH EVENING
     Route: 058
  4. HUMULIN N [Suspect]
     Dosage: 30 IU, EACH MORNING
     Route: 058
     Dates: start: 2010
  5. HUMULIN N [Suspect]
     Dosage: 30 IU, QD
     Route: 058
     Dates: start: 2010
  6. HUMULIN N [Suspect]
     Dosage: 20 IU, EACH EVENING
     Route: 058
     Dates: start: 2010
  7. HUMULIN R [Suspect]
     Indication: DIABETES MELLITUS
     Dosage: 5 IU, EACH MORNING
     Route: 058
  8. HUMULIN R [Suspect]
     Dosage: 5 IU, QD
     Route: 058
  9. HUMULIN R [Suspect]
     Dosage: 3 IU, EACH EVENING
     Route: 058
  10. HUMULIN R [Suspect]
     Dosage: 5 IU, EACH MORNING
     Route: 058
     Dates: start: 2010
  11. HUMULIN R [Suspect]
     Dosage: 5 IU, QD
     Route: 058
     Dates: start: 2010
  12. HUMULIN R [Suspect]
     Dosage: 3 IU, EACH EVENING
     Route: 058
     Dates: start: 2010

REACTIONS (8)
  - Renal failure [Not Recovered/Not Resolved]
  - Diabetic retinopathy [Not Recovered/Not Resolved]
  - Visual impairment [Not Recovered/Not Resolved]
  - Infection [Recovered/Resolved]
  - Immunodeficiency [Not Recovered/Not Resolved]
  - Injection site injury [Not Recovered/Not Resolved]
  - Injection site pain [Not Recovered/Not Resolved]
  - Needle issue [Unknown]
